FAERS Safety Report 5424492-4 (Version None)
Quarter: 2007Q3

REPORT INFORMATION
  Report Type: 
  Country: None (occurrence: None)
  Receive Date: 20070822
  Receipt Date: 20070810
  Transmission Date: 20080115
  Serious: Yes (Death, Hospitalization)
  Sender: FDA-Public Use
  Company Number: ENT 2007-0121

PATIENT
  Age: 70 Year
  Sex: Male

DRUGS (20)
  1. COMTAN [Suspect]
     Indication: PARKINSON'S DISEASE
     Dosage: ORAL
     Route: 048
  2. LOXEN [Suspect]
     Dosage: INTRAVENOUS
     Dates: start: 20070718, end: 20070718
  3. INIPOMP [Suspect]
     Dosage: IDF QD ORAL
     Route: 048
  4. FLURBIPROFEN [Suspect]
     Dosage: 100 MG (50 MG, 2 IN 1 D) ORAL
     Route: 048
     Dates: start: 20070606
  5. PAROXETINE [Suspect]
     Dosage: 1,5 DF QD ORAL
     Route: 048
     Dates: end: 20070716
  6. SINEMET [Suspect]
     Indication: PARKINSON'S DISEASE
     Dosage: 25-100MG ORAL
     Route: 048
  7. REQUIP [Suspect]
     Indication: PARKINSON'S DISEASE
     Dosage: 20 MG (5 MG, 4 IN 1 D) ORAL
     Route: 048
  8. MODOPAR [Suspect]
     Indication: PARKINSON'S DISEASE
     Dosage: 150/600 DAILY ORAL
     Route: 048
  9. OMIX [Suspect]
     Dosage: 0,4 MG, QD ORAL
     Route: 048
  10. IMOVANE [Concomitant]
     Dosage: 0,5 DF, QD ORAL
     Route: 048
  11. MOTILIUM [Suspect]
     Dosage: 60 MG (20 MG, 3 IN 1 D) ORAL
     Route: 048
  12. PERMIXON [Suspect]
     Dosage: 320 MG (160 MG, 2 IN 1 D) ORAL
     Route: 048
  13. XANAX [Suspect]
     Dosage: 1 MG (0.5 MG, 2 IN 1 D) ORAL
     Route: 048
     Dates: start: 20070717
  14. ULTIVA [Suspect]
     Dosage: INTRAVENOUS
     Route: 042
     Dates: start: 20070718, end: 20070718
  15. PROPOFOL [Suspect]
     Dosage: INTRAVENOUS
     Route: 042
     Dates: start: 20070718, end: 20070718
  16. ATROPINE [Suspect]
     Dosage: INTRAVENOUS
     Route: 042
     Dates: start: 20070718, end: 20070718
  17. PERFALGAN [Suspect]
     Dosage: INTRAVENOUS
     Route: 042
     Dates: start: 20070718, end: 20070718
  18. PROFENID [Suspect]
     Dosage: 100MG ONCE INTRAVENOUS
     Route: 042
     Dates: start: 20070718, end: 20070718
  19. MORPHINE [Suspect]
     Dosage: INTRAVENOUS
     Route: 042
     Dates: start: 20070718, end: 20070718
  20. OXACILLIN SODIUM [Suspect]
     Dosage: INTRAVENOUS
     Route: 042
     Dates: start: 20070718, end: 20070718

REACTIONS (9)
  - CEREBRAL HAEMATOMA [None]
  - CEREBRAL HAEMORRHAGE [None]
  - COAGULOPATHY [None]
  - GENERAL PHYSICAL HEALTH DETERIORATION [None]
  - INCISION SITE HAEMORRHAGE [None]
  - MYDRIASIS [None]
  - POST PROCEDURAL COMPLICATION [None]
  - PUPILS UNEQUAL [None]
  - SOMNOLENCE [None]
